FAERS Safety Report 5118101-1 (Version None)
Quarter: 2006Q4

REPORT INFORMATION
  Report Type: 
  Country: None (occurrence: None)
  Receive Date: 20061002
  Receipt Date: 20060912
  Transmission Date: 20070319
  Serious: Yes (Other)
  Sender: FDA-Public Use
  Company Number: PHMT2006CA01845

PATIENT
  Age: 63 Year
  Sex: Female

DRUGS (9)
  1. LAMISIL [Suspect]
     Indication: NAIL TINEA
     Dosage: 250 MG
     Route: 048
     Dates: start: 20060828
  2. DRUG THERAPY NOS [Concomitant]
     Route: 061
  3. PANTOPRAZOLE SODIUM [Concomitant]
  4. CRESTOR [Concomitant]
  5. CARBOCAL D [Concomitant]
  6. ELAVIL [Concomitant]
  7. MICARDIS HCT [Concomitant]
  8. SYNTHROID [Concomitant]
  9. ACTONEL [Concomitant]

REACTIONS (5)
  - CONDITION AGGRAVATED [None]
  - ECZEMA [None]
  - ERYTHEMA [None]
  - MUSCULOSKELETAL STIFFNESS [None]
  - SKIN EXFOLIATION [None]
